FAERS Safety Report 9897456 (Version 3)
Quarter: 2014Q1

REPORT INFORMATION
  Report Type: Report from Study
  Country: US (occurrence: US)
  Receive Date: 20140214
  Receipt Date: 20140321
  Transmission Date: 20141002
  Serious: Yes (Death, Other)
  Sender: FDA-Public Use
  Company Number: US-BAYER-2014-016660

PATIENT
  Age: 68 Year
  Sex: Male

DRUGS (1)
  1. NEXAVAR [Suspect]
     Indication: HEPATIC CANCER
     Dosage: 400 MG, BID
     Route: 048
     Dates: start: 201401

REACTIONS (9)
  - Fatigue [None]
  - Nausea [None]
  - Alopecia [None]
  - Decreased appetite [None]
  - Weight decreased [None]
  - Blood sodium decreased [Not Recovered/Not Resolved]
  - Local swelling [None]
  - Localised oedema [None]
  - Death [Fatal]
